FAERS Safety Report 6388431-4 (Version None)
Quarter: 2009Q4

REPORT INFORMATION
  Report Type: 
  Country: None (occurrence: None)
  Receive Date: 20091005
  Receipt Date: 20090929
  Transmission Date: 20100525
  Serious: Yes (Hospitalization)
  Sender: FDA-Public Use
  Company Number: NL-BRISTOL-MYERS SQUIBB COMPANY-14804637

PATIENT
  Sex: Female

DRUGS (1)
  1. CARBIDOPA + LEVODOPA [Suspect]
     Dosage: 62.5MG/TID
     Route: 065

REACTIONS (3)
  - DELIRIUM [None]
  - HALLUCINATION [None]
  - TRANSIENT ISCHAEMIC ATTACK [None]
